FAERS Safety Report 8785825 (Version 1)
Quarter: 2012Q4

REPORT INFORMATION
  Report Type: 
  Country: US (occurrence: US)
  Receive Date: 20120914
  Receipt Date: 20120914
  Transmission Date: 20130627
  Serious: No
  Sender: FDA-Public Use
  Company Number: US-MYLANLABS-2012S1014941

PATIENT
  Age: 86 Year
  Sex: Female
  Weight: 57.61 kg

DRUGS (2)
  1. CLOPIDOGREL TABLETS USP [Suspect]
     Indication: HYPOAESTHESIA
     Route: 048
     Dates: start: 201206
  2. SYNTHROID [Concomitant]
     Indication: HYPOTHYROIDISM

REACTIONS (1)
  - Diarrhoea [Not Recovered/Not Resolved]
